FAERS Safety Report 20070793 (Version 1)
Quarter: 2021Q4

REPORT INFORMATION
  Report Type: Spontaneous
  Country: US (occurrence: None)
  Receive Date: 20211115
  Receipt Date: 20211115
  Transmission Date: 20220303
  Serious: Yes (Other)
  Sender: FDA-Public Use
  Company Number: None

PATIENT
  Age: 47 Year
  Sex: Female
  Weight: 86.85 kg

DRUGS (2)
  1. COPAXONE [Suspect]
     Active Substance: GLATIRAMER ACETATE
     Indication: Multiple sclerosis
     Dosage: FREQUENCY : DAILY;?
     Route: 048
  2. generic to ticfadera [Concomitant]

REACTIONS (11)
  - Depression [None]
  - Assisted suicide [None]
  - Anxiety [None]
  - Loss of personal independence in daily activities [None]
  - Hypoaesthesia [None]
  - Paraesthesia [None]
  - Headache [None]
  - Muscle spasms [None]
  - Crying [None]
  - Impaired driving ability [None]
  - Gastrointestinal disorder [None]

NARRATIVE: CASE EVENT DATE: 20201203
